FAERS Safety Report 6855846-7 (Version None)
Quarter: 2010Q3

REPORT INFORMATION
  Report Type: 
  Country: None (occurrence: None)
  Receive Date: 20100715
  Receipt Date: 20100715
  Transmission Date: 20110219
  Serious: Yes (Other)
  Sender: FDA-Public Use
  Company Number: None

PATIENT
  Age: 71 Year
  Sex: Male
  Weight: 125.9 kg

DRUGS (3)
  1. METOCLOPRAMIDE [Suspect]
     Indication: GASTRITIS
     Dosage: 10 MG 4X/DAY IV/PO
     Route: 048
     Dates: start: 20100101, end: 20100301
  2. METOCLOPRAMIDE [Suspect]
     Indication: GASTROOESOPHAGEAL REFLUX DISEASE
     Dosage: 10 MG 4X/DAY IV/PO
     Route: 048
     Dates: start: 20100101, end: 20100301
  3. METOCLOPRAMIDE [Suspect]
     Indication: NAUSEA
     Dosage: 10 MG 4X/DAY IV/PO
     Route: 048
     Dates: start: 20100101, end: 20100301

REACTIONS (2)
  - REFUSAL OF TREATMENT BY PATIENT [None]
  - TARDIVE DYSKINESIA [None]
